FAERS Safety Report 5069665-8 (Version None)
Quarter: 2006Q3

REPORT INFORMATION
  Report Type: 
  Country: None (occurrence: None)
  Receive Date: 20060802
  Receipt Date: 20060802
  Transmission Date: 20061208
  Serious: Yes (Hospitalization)
  Sender: FDA-Public Use
  Company Number: None

PATIENT
  Age: 85 Year
  Sex: Male

DRUGS (8)
  1. SODIUM FERRIC GLUONATE COMPLEX 62.5 MG/ML [Suspect]
     Indication: ANAEMIA
     Dosage: 250 MG WEEKLY IV DRIP
     Route: 041
     Dates: start: 20060102, end: 20060109
  2. LOTREL [Concomitant]
  3. WARFARIN SODIUM [Concomitant]
  4. AMIODARONE HCL [Concomitant]
  5. SYNTHROID [Concomitant]
  6. BUMETANIDE [Concomitant]
  7. ASPIRIN [Concomitant]
  8. LIPITOR [Concomitant]

REACTIONS (8)
  - ABDOMINAL PAIN [None]
  - ATRIOVENTRICULAR BLOCK FIRST DEGREE [None]
  - BRADYCARDIA [None]
  - HYPOTENSION [None]
  - INFUSION RELATED REACTION [None]
  - LOSS OF CONSCIOUSNESS [None]
  - SYNCOPE [None]
  - URINARY INCONTINENCE [None]
